FAERS Safety Report 16571409 (Version 1)
Quarter: 2019Q3

REPORT INFORMATION
  Report Type: Spontaneous
  Country: US (occurrence: US)
  Receive Date: 20190713
  Receipt Date: 20190713
  Transmission Date: 20191004
  Serious: Yes (Life-Threatening, Hospitalization, Disabling)
  Sender: FDA-Public Use
  Company Number: None

PATIENT
  Age: 63 Year
  Sex: Female
  Weight: 87.3 kg

DRUGS (1)
  1. ZOSTRIX ORIGINAL STRENGTH [Suspect]
     Active Substance: CAPSAICIN
     Indication: PAIN IN EXTREMITY
     Dates: start: 20190611, end: 20190611

REACTIONS (6)
  - Skin burning sensation [None]
  - Skin discolouration [None]
  - Pain [None]
  - Toe amputation [None]
  - Peripheral swelling [None]
  - Blister [None]

NARRATIVE: CASE EVENT DATE: 20190612
